FAERS Safety Report 7302275-8 (Version None)
Quarter: 2011Q1

REPORT INFORMATION
  Report Type: 
  Country: None (occurrence: None)
  Receive Date: 20110218
  Receipt Date: 20110207
  Transmission Date: 20110831
  Serious: Yes (Hospitalization)
  Sender: FDA-Public Use
  Company Number: CN-MYLANLABS-2011S1002659

PATIENT
  Age: 59 Year
  Sex: Male
  Weight: 74 kg

DRUGS (2)
  1. DILTIAZEM [Suspect]
     Indication: ANGINA PECTORIS
     Route: 048
  2. SIMVASTATIN [Interacting]
     Route: 048

REACTIONS (2)
  - DRUG INTERACTION [None]
  - RHABDOMYOLYSIS [None]
